FAERS Safety Report 5017944-2 (Version None)
Quarter: 2006Q2

REPORT INFORMATION
  Report Type: 
  Country: None (occurrence: None)
  Receive Date: 20060602
  Receipt Date: 20060602
  Transmission Date: 20061013
  Serious: Yes (Hospitalization, Disabling, Other)
  Sender: FDA-Public Use
  Company Number: None

PATIENT
  Sex: Female
  Weight: 59.1 kg

DRUGS (1)
  1. CYMBALTA [Suspect]
     Dosage: 30MG  DAILY PO
     Route: 048
     Dates: start: 20060523, end: 20060530

REACTIONS (7)
  - ASTHENIA [None]
  - BALANCE DISORDER [None]
  - CONFUSIONAL STATE [None]
  - FALL [None]
  - FATIGUE [None]
  - PAIN [None]
  - VOMITING [None]
